FAERS Safety Report 8191193-1 (Version None)
Quarter: 2012Q1

REPORT INFORMATION
  Report Type: 
  Country: None (occurrence: None)
  Receive Date: 20120307
  Receipt Date: 20120228
  Transmission Date: 20120608
  Serious: No
  Sender: FDA-Public Use
  Company Number: US-PFIZER INC-2012054212

PATIENT
  Sex: Female

DRUGS (1)
  1. TYGACIL [Suspect]
     Dosage: UNK
     Route: 042

REACTIONS (2)
  - EXTRAVASATION [None]
  - PAIN IN EXTREMITY [None]
